FAERS Safety Report 5160145-8 (Version None)
Quarter: 2006Q4

REPORT INFORMATION
  Report Type: 
  Country: None (occurrence: None)
  Receive Date: 20061129
  Receipt Date: 20061030
  Transmission Date: 20070319
  Serious: Yes (Other)
  Sender: FDA-Public Use
  Company Number: AU-NOVOPROD-258216

PATIENT
  Age: 85 Year
  Sex: Female
  Weight: 45 kg

DRUGS (4)
  1. ACTRAPID [Suspect]
     Indication: DIABETES MELLITUS INSULIN-DEPENDENT
     Dosage: LUNCH THREE IU, DINNER THREE IU
     Route: 058
     Dates: start: 19890101, end: 20061013
  2. MIXTARD HUMAN 70/30 [Suspect]
     Indication: DIABETES MELLITUS INSULIN-DEPENDENT
     Dosage: 10-12 UNITS IN THE MORNIG
     Route: 058
     Dates: end: 20061001
  3. ALPHAPRESS [Concomitant]
     Indication: BLOOD PRESSURE
     Route: 048
     Dates: start: 20000101
  4. FOSAMAX [Concomitant]

REACTIONS (2)
  - HYPOGLYCAEMIA [None]
  - RADIUS FRACTURE [None]
